FAERS Safety Report 21648645 (Version 1)
Quarter: 2022Q4

REPORT INFORMATION
  Report Type: Spontaneous
  Country: FR (occurrence: FR)
  Receive Date: 20221128
  Receipt Date: 20221128
  Transmission Date: 20230112
  Serious: Yes (Hospitalization, Other)
  Sender: FDA-Public Use
  Company Number: None

PATIENT
  Age: 59 Year
  Sex: Female

DRUGS (3)
  1. METRONIDAZOLE [Suspect]
     Active Substance: METRONIDAZOLE
     Indication: Infection
     Dosage: 500 MG, EVERY 8 HOURS (DOSAGE TEXT: / 8H)
     Route: 042
     Dates: start: 20221109, end: 20221110
  2. CLINDAMYCIN [Suspect]
     Active Substance: CLINDAMYCIN
     Indication: Infection
     Dosage: AT AN UNSPECIFIED DOSE AND FREQUENCY (BASE)
     Route: 042
     Dates: start: 20221110, end: 20221114
  3. LEVOFLOXACIN [Suspect]
     Active Substance: LEVOFLOXACIN
     Indication: Infection
     Dosage: 500 MG, EVERY 12 HOURS (DOSAGE TEXT: /12H)
     Route: 042
     Dates: start: 20221109, end: 20221110

REACTIONS (1)
  - Acute generalised exanthematous pustulosis [Not Recovered/Not Resolved]

NARRATIVE: CASE EVENT DATE: 20221113
